FAERS Safety Report 6925795-4 (Version None)
Quarter: 2010Q3

REPORT INFORMATION
  Report Type: 
  Country: None (occurrence: None)
  Receive Date: 20100813
  Receipt Date: 20100813
  Transmission Date: 20110219
  Serious: No
  Sender: FDA-Public Use
  Company Number: None

PATIENT
  Age: 58 Year
  Sex: Female
  Weight: 63.05 kg

DRUGS (1)
  1. PREMPRO [Suspect]
     Indication: MENOPAUSE
     Dosage: 1 PILL ONCE EACH DAY PO
     Route: 048
     Dates: start: 20020101

REACTIONS (6)
  - DEPENDENCE [None]
  - DEPRESSION [None]
  - DISEASE RECURRENCE [None]
  - IMPAIRED WORK ABILITY [None]
  - MENOPAUSAL SYMPTOMS [None]
  - PAIN [None]
